FAERS Safety Report 9539298 (Version 1)
Quarter: 2013Q2

REPORT INFORMATION
  Report Type: Spontaneous
  Country: US (occurrence: None)
  Receive Date: 20130507
  Receipt Date: 20130507
  Transmission Date: 20140414
  Serious: No
  Sender: FDA-Public Use
  Company Number: PHEH2012US025084

PATIENT
  Age: 57 Year
  Sex: Female

DRUGS (4)
  1. AFINITOR (RAD) UNKNOWN [Suspect]
     Route: 048
     Dates: start: 20121127
  2. AROMASIN [Concomitant]
  3. PARAX [Concomitant]
  4. TRAZODONA [Concomitant]

REACTIONS (1)
  - Stomatitis [None]
